FAERS Safety Report 5944903-5 (Version None)
Quarter: 2008Q4

REPORT INFORMATION
  Report Type: 
  Country: None (occurrence: None)
  Receive Date: 20081107
  Receipt Date: 20081031
  Transmission Date: 20090506
  Serious: Yes (Hospitalization, Disabling)
  Sender: FDA-Public Use
  Company Number: JP-ASTRAZENECA-2008AP08555

PATIENT
  Age: 38 Year
  Sex: Female

DRUGS (1)
  1. NAROPIN [Suspect]
     Indication: EPIDURAL ANAESTHESIA
     Route: 008
     Dates: start: 20081027, end: 20081028

REACTIONS (1)
  - MONOPLEGIA [None]
